FAERS Safety Report 21264059 (Version 1)
Quarter: 2022Q3

REPORT INFORMATION
  Report Type: Report from Study
  Country: US (occurrence: US)
  Receive Date: 20220829
  Receipt Date: 20220829
  Transmission Date: 20221026
  Serious: Yes (Other)
  Sender: FDA-Public Use
  Company Number: US-SA-2019SA256959

PATIENT
  Age: 37 Year
  Sex: Male

DRUGS (1)
  1. TERIFLUNOMIDE [Suspect]
     Active Substance: TERIFLUNOMIDE
     Indication: Multiple sclerosis
     Dosage: UNK
     Dates: start: 20180918, end: 20180918

REACTIONS (22)
  - Seizure [Unknown]
  - Multiple sclerosis relapse [Unknown]
  - Multiple sclerosis relapse [Recovered/Resolved]
  - Chest pain [Recovered/Resolved]
  - Chest discomfort [Recovered/Resolved]
  - Cognitive disorder [Unknown]
  - Product dose omission issue [Unknown]
  - Bladder disorder [Unknown]
  - Abdominal discomfort [Not Recovered/Not Resolved]
  - Cough [Unknown]
  - Throat clearing [Unknown]
  - Tremor [Not Recovered/Not Resolved]
  - Bowel movement irregularity [Unknown]
  - Memory impairment [Unknown]
  - Condition aggravated [Unknown]
  - Confusional state [Unknown]
  - Feeling abnormal [Unknown]
  - Musculoskeletal stiffness [Unknown]
  - Gait disturbance [Unknown]
  - Mood swings [Unknown]
  - Memory impairment [Unknown]
  - Feelings of worthlessness [Unknown]

NARRATIVE: CASE EVENT DATE: 20191001
